FAERS Safety Report 4964872-4 (Version None)
Quarter: 2006Q2

REPORT INFORMATION
  Report Type: 
  Country: None (occurrence: None)
  Receive Date: 20060403
  Receipt Date: 20060328
  Transmission Date: 20061013
  Serious: Yes (Life-Threatening, Hospitalization)
  Sender: FDA-Public Use
  Company Number: HQWYE469022MAR06

PATIENT
  Age: 55 Year
  Sex: Male

DRUGS (22)
  1. TIGECYCLINE (TIGECYCLINE, INJECTION) [Suspect]
     Indication: PNEUMONIA
     Dosage: 100 MG LOADING THEN 50 MG EVERY 12 HOURS, INTRAVENOUS
     Route: 042
     Dates: start: 20060318, end: 20060320
  2. ALBUMIN HUMAN IALBUMIN HUMAN) [Concomitant]
  3. INSULIN (INSULIN) [Concomitant]
  4. BAMBUTEROL (BAMBUTEROL) [Concomitant]
  5. AMBROXOL (AMBROXOL) [Concomitant]
  6. XOPENEX [Concomitant]
  7. IPRATROPIUM BROMIDE [Concomitant]
  8. LEVOFLOXACIN [Concomitant]
  9. CEFOPERAZONE SODIUM/SULBACTAM SODIUM (CEFOPERAZONE SODIUM) [Concomitant]
  10. ZOSYN [Concomitant]
  11. AMIKACIN [Concomitant]
  12. BACTAR (SULFAMETHOXAZOLE/TRIMETHOPRIM) [Concomitant]
  13. AZITHROMYCIN [Concomitant]
  14. RABEPRAZOLE (RABEPRAZOLE) [Concomitant]
  15. AMLODIPINE [Concomitant]
  16. ACETAMINOPHEN [Concomitant]
  17. KCL-ZYMA (POTASSIUM CHLORIDE) [Concomitant]
  18. FUROSEMIDE [Concomitant]
  19. HYDROCHLOROTHIAZIDE [Concomitant]
  20. MIDAZOLAM HCL [Concomitant]
  21. MORPHINE [Concomitant]
  22. DOPAMINE HCL [Concomitant]

REACTIONS (1)
  - THROMBOCYTOPENIA [None]
